FAERS Safety Report 10430295 (Version 2)
Quarter: 2014Q3

REPORT INFORMATION
  Report Type: Spontaneous
  Country: DE (occurrence: DE)
  Receive Date: 20140904
  Receipt Date: 20140904
  Transmission Date: 20150326
  Serious: Yes (Hospitalization)
  Sender: FDA-Public Use
  Company Number: DE-IAC KOREA XML-DEU-2014-0014389

PATIENT
  Age: 90 Year
  Sex: Female

DRUGS (4)
  1. TARGIN  RETARDTABLETTEN [Suspect]
     Active Substance: NALOXONE HYDROCHLORIDE\OXYCODONE HYDROCHLORIDE
     Indication: MUSCULOSKELETAL DISCOMFORT
     Dosage: 15/7.5 MG, DAILY
     Route: 048
  2. DELIX                              /00885601/ [Concomitant]
  3. BELOC ZOK [Concomitant]
     Active Substance: METOPROLOL SUCCINATE
  4. TARGIN  RETARDTABLETTEN [Suspect]
     Active Substance: NALOXONE HYDROCHLORIDE\OXYCODONE HYDROCHLORIDE
     Dosage: 20/10 MG, DAILY
     Route: 048

REACTIONS (5)
  - Cholangitis [Recovered/Resolved]
  - Biliary colic [Recovered/Resolved]
  - Biliary colic [Recovered/Resolved]
  - Pancreatic disorder [Recovered/Resolved]
  - Bile duct stone [Recovered/Resolved]

NARRATIVE: CASE EVENT DATE: 201404
